FAERS Safety Report 12187831 (Version 3)
Quarter: 2016Q2

REPORT INFORMATION
  Report Type: Spontaneous
  Country: BR (occurrence: BR)
  Receive Date: 20160317
  Receipt Date: 20160523
  Transmission Date: 20160815
  Serious: Yes (Death, Hospitalization)
  Sender: FDA-Public Use
  Company Number: BR-PFIZER INC-2016148293

PATIENT
  Age: 72 Year
  Sex: Male

DRUGS (1)
  1. SUTENT [Suspect]
     Active Substance: SUNITINIB MALATE
     Indication: METASTATIC RENAL CELL CARCINOMA
     Dosage: 50 MG, CYCLE 4 PER 2
     Route: 048
     Dates: start: 20160206

REACTIONS (7)
  - Multiple organ dysfunction syndrome [Fatal]
  - Disease progression [Fatal]
  - Sepsis [Fatal]
  - Ageusia [Recovering/Resolving]
  - Respiratory disorder [Unknown]
  - Metastatic renal cell carcinoma [Fatal]
  - Fatigue [Unknown]

NARRATIVE: CASE EVENT DATE: 2016
